FAERS Safety Report 7365794 (Version 2)
Quarter: 2014Q1

REPORT INFORMATION
  Report Type: Spontaneous
  Country: US (occurrence: US)
  Receive Date: 20100426
  Receipt Date: 20140204
  Transmission Date: 20141002
  Serious: Yes (Hospitalization)
  Sender: FDA-Public Use
  Company Number: US-AMGEN-QUU406997

PATIENT
  Age: 63 Year
  Sex: Male

DRUGS (2)
  1. ENBREL [Suspect]
     Indication: RHEUMATOID ARTHRITIS
     Dosage: 50 MG, QWK
     Route: 065
     Dates: start: 20080101
  2. ENBREL [Suspect]
     Dosage: UNK
     Route: 065

REACTIONS (9)
  - Rectal haemorrhage [Recovered/Resolved]
  - Polyp [Recovered/Resolved]
  - Renal failure [Recovered/Resolved]
  - Implantable defibrillator insertion [Recovered/Resolved]
  - Cardiac failure congestive [Recovered/Resolved]
  - Heart rate irregular [Recovered/Resolved]
  - Blood pressure increased [Recovered/Resolved]
  - Rheumatoid arthritis [Not Recovered/Not Resolved]
  - Muscle strain [Not Recovered/Not Resolved]
